FAERS Safety Report 10021625 (Version 2)
Quarter: 2014Q1

REPORT INFORMATION
  Report Type: Spontaneous
  Country: US (occurrence: US)
  Receive Date: 20140319
  Receipt Date: 20140319
  Transmission Date: 20141002
  Serious: No
  Sender: FDA-Public Use
  Company Number: US-TEVA-386386USA

PATIENT
  Sex: Female

DRUGS (1)
  1. FLUOCINONIDE [Suspect]

REACTIONS (1)
  - Rash pruritic [Unknown]
